FAERS Safety Report 10142255 (Version 2)
Quarter: 2014Q2

REPORT INFORMATION
  Report Type: Spontaneous
  Country: US (occurrence: US)
  Receive Date: 20140429
  Receipt Date: 20140604
  Transmission Date: 20141212
  Serious: No
  Sender: FDA-Public Use
  Company Number: US-B.I. PHARMACEUTICALS,INC./RIDGEFIELD-2014-BI-18254BP

PATIENT
  Age: 78 Year
  Sex: Male
  Weight: 102 kg

DRUGS (5)
  1. PRADAXA [Suspect]
     Indication: ATRIAL FIBRILLATION
     Dosage: 300 MG
     Route: 048
     Dates: start: 201312
  2. OXYCODONE [Suspect]
     Indication: PAIN
     Dosage: STRENGTH: 7.5 MG-500 MG
     Route: 048
  3. OXYCODONE [Suspect]
     Indication: SPINAL COLUMN STENOSIS
  4. TAMSULOSIN [Concomitant]
     Indication: PROSTATOMEGALY
     Dosage: 0.8 MG
     Route: 048
  5. METOPROLOL [Concomitant]
     Indication: ATRIAL FIBRILLATION
     Dosage: 100 MG
     Route: 048

REACTIONS (2)
  - Fatigue [Recovered/Resolved]
  - Hypersomnia [Recovered/Resolved]
